FAERS Safety Report 8710891 (Version 4)
Quarter: 2013Q1

REPORT INFORMATION
  Report Type: Spontaneous
  Country: JP (occurrence: JP)
  Receive Date: 20120807
  Receipt Date: 20130226
  Transmission Date: 20140127
  Serious: Yes (Death, Other)
  Sender: FDA-Public Use
  Company Number: PHHY2012JP067375

PATIENT
  Age: 72 Year
  Sex: Female

DRUGS (9)
  1. TASIGNA [Suspect]
     Indication: CHRONIC MYELOID LEUKAEMIA
     Dosage: 300 MG, QD
     Route: 048
     Dates: start: 20120427, end: 20120510
  2. TASIGNA [Suspect]
     Dosage: 400 MG, QD
     Route: 048
     Dates: start: 20120511
  3. ITOROL [Suspect]
     Indication: MYOCARDIAL ISCHAEMIA
     Dosage: 40 MG, QD
     Route: 048
     Dates: end: 20120511
  4. NU-LOTAN [Suspect]
     Indication: HYPERTENSION
     Dosage: 25 MG, QD
     Route: 048
     Dates: end: 20120511
  5. THYRADIN [Suspect]
     Indication: HYPOTHYROIDISM
     Dosage: 75 UG, QD
     Route: 048
     Dates: end: 20120511
  6. ADALAT CR [Suspect]
     Indication: HYPERTENSION
     Dosage: 20 MG, QD
     Route: 048
     Dates: end: 20120511
  7. LASIX [Suspect]
     Indication: OEDEMA
     Dosage: 20 MG, QD
     Route: 048
     Dates: end: 20120511
  8. METHYCOBAL [Suspect]
     Indication: NEUROPATHY PERIPHERAL
     Dosage: 1 UG, QD
     Route: 048
  9. BASEN [Suspect]
     Indication: DIABETES MELLITUS
     Dosage: 0.9 MG, QD
     Route: 048
     Dates: start: 20120622

REACTIONS (4)
  - Cardiac arrest [Fatal]
  - Blood glucose increased [Unknown]
  - Pruritus [Recovered/Resolved]
  - Platelet count decreased [Unknown]
